FAERS Safety Report 16010979 (Version 1)
Quarter: 2019Q1

REPORT INFORMATION
  Report Type: Spontaneous
  Country: US (occurrence: US)
  Receive Date: 20190227
  Receipt Date: 20190227
  Transmission Date: 20190418
  Serious: No
  Sender: FDA-Public Use
  Company Number: US-AUROBINDO-AUR-APL-2018-035472

PATIENT

DRUGS (1)
  1. CEFDINIR CAPSULES 300 MG [Suspect]
     Active Substance: CEFDINIR
     Indication: GLUTEN SENSITIVITY
     Dosage: UNK

REACTIONS (1)
  - Abdominal discomfort [Unknown]
